FAERS Safety Report 13245583 (Version 3)
Quarter: 2017Q1

REPORT INFORMATION
  Report Type: Spontaneous
  Country: CH (occurrence: CH)
  Receive Date: 20170217
  Receipt Date: 20170307
  Transmission Date: 20170428
  Serious: Yes (Hospitalization)
  Sender: FDA-Public Use
  Company Number: CH-ROCHE-1893190

PATIENT
  Age: 67 Year
  Sex: Female
  Weight: 45 kg

DRUGS (11)
  1. ESBRIET [Suspect]
     Active Substance: PIRFENIDONE
     Indication: IDIOPATHIC PULMONARY FIBROSIS
     Route: 048
     Dates: start: 201303, end: 201601
  2. OFEV [Suspect]
     Active Substance: NINTEDANIB
     Indication: IDIOPATHIC PULMONARY FIBROSIS
     Route: 048
     Dates: start: 201601
  3. ESBRIET [Suspect]
     Active Substance: PIRFENIDONE
     Route: 048
     Dates: start: 20160711, end: 20161027
  4. OFEV [Suspect]
     Active Substance: NINTEDANIB
     Route: 048
     Dates: start: 201607, end: 20161027
  5. FRAGMIN [Concomitant]
     Active Substance: DALTEPARIN SODIUM
  6. LAXOBERON [Concomitant]
     Active Substance: SODIUM PICOSULFATE
  7. MORPHINE HCL [Concomitant]
     Active Substance: MORPHINE HYDROCHLORIDE
  8. MOTILIUM [Concomitant]
     Active Substance: DOMPERIDONE
  9. PASPERTIN (SWITZERLAND) [Concomitant]
     Active Substance: METOCLOPRAMIDE HYDROCHLORIDE
  10. DAFALGAN [Concomitant]
     Active Substance: ACETAMINOPHEN
  11. TRITTICO [Concomitant]
     Active Substance: TRAZODONE HYDROCHLORIDE

REACTIONS (3)
  - Nausea [Recovered/Resolved]
  - Pneumothorax spontaneous [Recovered/Resolved]
  - Off label use [Unknown]

NARRATIVE: CASE EVENT DATE: 201607
